FAERS Safety Report 9922454 (Version 6)
Quarter: 2017Q3

REPORT INFORMATION
  Report Type: Spontaneous
  Country: JP (occurrence: JP)
  Receive Date: 20140225
  Receipt Date: 20170727
  Transmission Date: 20171128
  Serious: Yes (Hospitalization, Other)
  Sender: FDA-Public Use
  Company Number: JP-ABBVIE-13P-087-1184172-00

PATIENT
  Age: 74 Year
  Sex: Male
  Weight: 68.8 kg

DRUGS (7)
  1. ISCOTIN [Concomitant]
     Active Substance: ISONIAZID
     Indication: PULMONARY TUBERCULOSIS
     Route: 048
     Dates: start: 20131225
  2. ISCOTIN [Concomitant]
     Active Substance: ISONIAZID
     Indication: SPLENIC ABSCESS
  3. PYRIDOXAL PHOSPHATE HYDRATE [Concomitant]
     Indication: PROPHYLAXIS
     Route: 048
     Dates: start: 20121007, end: 20130819
  4. ISCOTIN [Concomitant]
     Active Substance: ISONIAZID
     Indication: DISSEMINATED TUBERCULOSIS
  5. ISCOTIN [Concomitant]
     Active Substance: ISONIAZID
     Indication: EXTRAPULMONARY TUBERCULOSIS
  6. HUMIRA [Suspect]
     Active Substance: ADALIMUMAB
     Indication: PSORIASIS
     Route: 058
     Dates: start: 20121026, end: 20131125
  7. ISCOTIN [Concomitant]
     Active Substance: ISONIAZID
     Indication: ANTIBIOTIC PROPHYLAXIS
     Route: 048
     Dates: start: 20121007, end: 20130819

REACTIONS (12)
  - Septic embolus [Recovering/Resolving]
  - Disseminated tuberculosis [Recovering/Resolving]
  - Extrapulmonary tuberculosis [Recovering/Resolving]
  - Psoas abscess [Unknown]
  - Pneumonia [Unknown]
  - Cystitis [Unknown]
  - Nephrolithiasis [Unknown]
  - Pulmonary tuberculosis [Recovering/Resolving]
  - Splenic abscess [Recovering/Resolving]
  - Drug ineffective [Unknown]
  - Spinal column stenosis [Unknown]
  - Liver abscess [Unknown]

NARRATIVE: CASE EVENT DATE: 20131206
